FAERS Safety Report 4676209-9 (Version None)
Quarter: 2005Q2

REPORT INFORMATION
  Report Type: 
  Country: None (occurrence: None)
  Receive Date: 20050527
  Receipt Date: 20041221
  Transmission Date: 20051028
  Serious: Yes (Hospitalization)
  Sender: FDA-Public Use
  Company Number: US-GLAXOSMITHKLINE-A0538242A

PATIENT
  Age: 39 Year
  Sex: Female

DRUGS (3)
  1. WELLBUTRIN XL [Suspect]
     Indication: PANIC ATTACK
     Dosage: 150MG PER DAY
     Route: 048
     Dates: start: 20041126, end: 20041129
  2. NEXIUM [Concomitant]
  3. ESTRACE [Concomitant]

REACTIONS (13)
  - ANXIETY [None]
  - BLOOD GLUCOSE DECREASED [None]
  - CHEST PAIN [None]
  - DRY MOUTH [None]
  - DYSPNOEA [None]
  - HEART RATE INCREASED [None]
  - MUSCULAR WEAKNESS [None]
  - NAUSEA [None]
  - NERVOUSNESS [None]
  - RASH [None]
  - THINKING ABNORMAL [None]
  - TINNITUS [None]
  - WEIGHT DECREASED [None]
